FAERS Safety Report 7743105-X (Version None)
Quarter: 2011Q3

REPORT INFORMATION
  Report Type: 
  Country: None (occurrence: None)
  Receive Date: 20110908
  Receipt Date: 20110908
  Transmission Date: 20111222
  Serious: Yes (Life-Threatening, Hospitalization, Disabling, Other)
  Sender: FDA-Public Use
  Company Number: None

PATIENT
  Age: 38 Year
  Sex: Female
  Weight: 68.0396 kg

DRUGS (1)
  1. LATUDA [Suspect]
     Indication: HALLUCINATION
     Dosage: 80 MG ONCE A DAY ORAL
     Route: 048
     Dates: start: 20110401

REACTIONS (1)
  - CHEST PAIN [None]
